FAERS Safety Report 9781191 (Version 1)
Quarter: 2013Q4

REPORT INFORMATION
  Report Type: Spontaneous
  Country: US (occurrence: None)
  Receive Date: 20131223
  Receipt Date: 20131223
  Transmission Date: 20140711
  Serious: Yes (Hospitalization, Disabling)
  Sender: FDA-Public Use
  Company Number: None

PATIENT
  Age: 70 Year
  Sex: Male
  Weight: 104.33 kg

DRUGS (1)
  1. MACROBID [Suspect]
     Indication: URINARY TRACT INFECTION
     Dosage: 1 PIL TWICE DAILY, TWICE DAILY, TAKEN BY MOUTH
     Dates: start: 20131010, end: 20131019

REACTIONS (3)
  - Musculoskeletal pain [None]
  - Axillary pain [None]
  - Breast pain [None]
